FAERS Safety Report 19661596 (Version 1)
Quarter: 2021Q3

REPORT INFORMATION
  Report Type: Report from Study
  Country: CA (occurrence: CA)
  Receive Date: 20210805
  Receipt Date: 20210805
  Transmission Date: 20211014
  Serious: Yes (Other)
  Sender: FDA-Public Use
  Company Number: CA-TAKEDA-2021TUS037062

PATIENT
  Age: 62 Year
  Sex: Female

DRUGS (3)
  1. ENTOCORT [Concomitant]
     Active Substance: BUDESONIDE
     Dosage: 09 MILLIGRAM
     Dates: start: 2019
  2. VEDOLIZUMAB [Suspect]
     Active Substance: VEDOLIZUMAB
     Indication: CROHN^S DISEASE
     Dosage: 300 MILLIGRAM
     Route: 042
     Dates: start: 20210304
  3. VEDOLIZUMAB [Suspect]
     Active Substance: VEDOLIZUMAB
     Dosage: 300 MILLIGRAM
     Route: 042

REACTIONS (1)
  - Crohn^s disease [Recovered/Resolved]
